FAERS Safety Report 5143520-7 (Version None)
Quarter: 2006Q4

REPORT INFORMATION
  Report Type: 
  Country: None (occurrence: None)
  Receive Date: 20061101
  Receipt Date: 20061101
  Transmission Date: 20070319
  Serious: Yes (Death)
  Sender: FDA-Public Use
  Company Number: None

PATIENT
  Age: 59 Year
  Sex: Female

DRUGS (5)
  1. MITOXANTRONE [Suspect]
     Indication: SECONDARY PROGRESSIVE MULTIPLE SCLEROSIS
     Dosage: 12 MG/M2 EVERY 3 MONTHS IV DRIP
     Route: 041
     Dates: start: 20020415, end: 20041118
  2. TYLENOL [Concomitant]
  3. POTASSIUM ACETATE [Concomitant]
  4. RESTORIL [Concomitant]
  5. LASIX [Concomitant]

REACTIONS (2)
  - MYELODYSPLASTIC SYNDROME [None]
  - PNEUMONIA [None]
